FAERS Safety Report 4362115-6 (Version None)
Quarter: 2004Q2

REPORT INFORMATION
  Report Type: 
  Country: None (occurrence: None)
  Receive Date: 20040517
  Receipt Date: 20040501
  Transmission Date: 20050107
  Serious: Yes (Hospitalization)
  Sender: FDA-Public Use
  Company Number: 195264

PATIENT
  Age: 47 Year
  Sex: Male

DRUGS (2)
  1. AVONEX    BIOGEN [Suspect]
     Indication: MULTIPLE SCLEROSIS
     Dosage: 30 MCG QW IM
     Route: 030
     Dates: start: 19990101, end: 20040201
  2. AVONEX     BIOGEN [Suspect]
     Indication: MULTIPLE SCLEROSIS
     Dosage: 30 MCG QW IM
     Route: 030
     Dates: start: 20040201

REACTIONS (13)
  - BLADDER DISORDER [None]
  - CARDIAC ARREST [None]
  - CARDIAC PACEMAKER MALFUNCTION [None]
  - CARDIAC PACEMAKER REPLACEMENT [None]
  - CARPAL TUNNEL SYNDROME [None]
  - ESCHERICHIA INFECTION [None]
  - HEART RATE IRREGULAR [None]
  - MULTIPLE SCLEROSIS RELAPSE [None]
  - OSTEOPOROSIS [None]
  - PNEUMONIA [None]
  - SPINAL FRACTURE [None]
  - STAPHYLOCOCCAL INFECTION [None]
  - SYNCOPE [None]
